FAERS Safety Report 8598779 (Version 4)
Quarter: 2015Q1

REPORT INFORMATION
  Report Type: Spontaneous
  Country: US (occurrence: US)
  Receive Date: 20120605
  Receipt Date: 20150114
  Transmission Date: 20150721
  Serious: Yes (Other)
  Sender: FDA-Public Use
  Company Number: US-AMGEN-USASP2012032875

PATIENT
  Age: 53 Year
  Sex: Male

DRUGS (2)
  1. TREXALL [Concomitant]
     Active Substance: METHOTREXATE SODIUM
     Dosage: 1 MG, UNK
     Dates: start: 201109
  2. ENBREL [Suspect]
     Active Substance: ETANERCEPT
     Indication: RHEUMATOID ARTHRITIS
     Dosage: 50 MG, QWK
     Route: 065
     Dates: start: 20111006

REACTIONS (16)
  - Cough [Not Recovered/Not Resolved]
  - Energy increased [Not Recovered/Not Resolved]
  - Joint swelling [Not Recovered/Not Resolved]
  - Osteoarthritis [Not Recovered/Not Resolved]
  - Hypoaesthesia [Not Recovered/Not Resolved]
  - Arthralgia [Not Recovered/Not Resolved]
  - Haematocrit decreased [Recovered/Resolved]
  - Hypertension [Not Recovered/Not Resolved]
  - Back pain [Not Recovered/Not Resolved]
  - Epistaxis [Not Recovered/Not Resolved]
  - Stress [Not Recovered/Not Resolved]
  - Blood count abnormal [Recovered/Resolved]
  - Sinusitis [Not Recovered/Not Resolved]
  - Joint effusion [Not Recovered/Not Resolved]
  - Mobility decreased [Not Recovered/Not Resolved]
  - Rheumatoid arthritis [Unknown]

NARRATIVE: CASE EVENT DATE: 2011
